FAERS Safety Report 7003903-7 (Version None)
Quarter: 2010Q3

REPORT INFORMATION
  Report Type: 
  Country: None (occurrence: None)
  Receive Date: 20100920
  Receipt Date: 20100104
  Transmission Date: 20110219
  Serious: No
  Sender: FDA-Public Use
  Company Number: US-WYE-H12865110

PATIENT
  Age: 55 Year
  Sex: Male

DRUGS (7)
  1. PROTONIX [Suspect]
     Indication: GASTROOESOPHAGEAL REFLUX DISEASE
     Route: 048
     Dates: start: 20050101, end: 20091201
  2. METHADONE HCL [Concomitant]
  3. PHENERGAN [Concomitant]
  4. MAGNESIUM [Concomitant]
  5. PROMETHAZINE [Concomitant]
  6. INSULIN [Concomitant]
  7. OXYCONTIN [Concomitant]

REACTIONS (1)
  - DRUG SCREEN POSITIVE [None]
